FAERS Safety Report 13559993 (Version 1)
Quarter: 2017Q2

REPORT INFORMATION
  Report Type: Spontaneous
  Country: US (occurrence: US)
  Receive Date: 20170518
  Receipt Date: 20170518
  Transmission Date: 20170830
  Serious: Yes (Death, Life-Threatening, Hospitalization, Other)
  Sender: FDA-Public Use
  Company Number: US-LUPIN PHARMACEUTICALS INC.-2017-02436

PATIENT
  Age: 49 Year
  Sex: Male

DRUGS (3)
  1. HYDROCODONE BITARTRATE AND ACETAMINOPHEN [Suspect]
     Active Substance: ACETAMINOPHEN\HYDROCODONE BITARTRATE
     Indication: PRODUCT USED FOR UNKNOWN INDICATION
     Dosage: 40 DF, SINGLE (OVERDOSE)
     Route: 065
  2. ASPIRIN. [Suspect]
     Active Substance: ASPIRIN
     Indication: PRODUCT USED FOR UNKNOWN INDICATION
     Dosage: UNK(OVERDOSE)
     Route: 065
  3. MELATONIN [Suspect]
     Active Substance: MELATONIN
     Indication: PRODUCT USED FOR UNKNOWN INDICATION
     Dosage: UNK (OVERDOSE)
     Route: 065

REACTIONS (10)
  - Cardiac arrest [Fatal]
  - Tachycardia [Unknown]
  - Seizure [Unknown]
  - Confusional state [Unknown]
  - Alanine aminotransferase increased [Unknown]
  - Toxicity to various agents [Fatal]
  - Intentional overdose [Fatal]
  - Aspartate aminotransferase increased [Unknown]
  - Tachypnoea [Unknown]
  - Agitation [Unknown]
